FAERS Safety Report 23856430 (Version 2)
Quarter: 2024Q2

REPORT INFORMATION
  Report Type: Report from Study
  Country: MX (occurrence: MX)
  Receive Date: 20240515
  Receipt Date: 20240611
  Transmission Date: 20240716
  Serious: Yes (Hospitalization)
  Sender: FDA-Public Use
  Company Number: MX-AstraZeneca-2024A110192

PATIENT
  Age: 1 Year
  Sex: Male
  Weight: 8 kg

DRUGS (5)
  1. SYNAGIS [Suspect]
     Active Substance: PALIVIZUMAB
     Indication: Antiviral prophylaxis
     Dosage: STRENGTH 50 MG/0.5 ML, MONTHLY.
     Route: 030
     Dates: start: 20240206, end: 20240206
  2. SYNAGIS [Suspect]
     Active Substance: PALIVIZUMAB
     Dosage: STRENGTH 50 MG/0.5 ML, MONTHLY
     Route: 030
     Dates: start: 20240506, end: 20240506
  3. SPIRONOLACTONE [Concomitant]
     Active Substance: SPIRONOLACTONE
     Indication: Product used for unknown indication
  4. CAPTOPRIL [Concomitant]
     Active Substance: CAPTOPRIL
     Indication: Product used for unknown indication
  5. FIROSEMIDE [Concomitant]
     Indication: Product used for unknown indication

REACTIONS (8)
  - Pneumonia [Recovered/Resolved]
  - Respiratory rate increased [Unknown]
  - Pyrexia [Recovered/Resolved]
  - Abdominal infection [Recovered/Resolved]
  - Haemoglobin decreased [Unknown]
  - Inappropriate schedule of product administration [Unknown]
  - Cough [Not Recovered/Not Resolved]
  - Pneumonia viral [Not Recovered/Not Resolved]

NARRATIVE: CASE EVENT DATE: 20240328
